FAERS Safety Report 4628003-2 (Version None)
Quarter: 2005Q2

REPORT INFORMATION
  Report Type: 
  Country: None (occurrence: None)
  Receive Date: 20050406
  Receipt Date: 20050308
  Transmission Date: 20051028
  Serious: Yes (Hospitalization)
  Sender: FDA-Public Use
  Company Number: CA-ROCHE-397710

PATIENT
  Age: 62 Year
  Sex: Male
  Weight: 90 kg

DRUGS (10)
  1. PEG-INTERFERON ALFA 2A (RO 25-8310) [Suspect]
     Route: 058
     Dates: start: 20050206, end: 20050220
  2. PEG-INTERFERON ALFA 2A (RO 25-8310) [Suspect]
     Route: 058
     Dates: start: 20050320
  3. RIBAVIRIN [Suspect]
     Route: 048
     Dates: start: 20050206, end: 20050220
  4. RIBAVIRIN [Suspect]
     Route: 048
     Dates: start: 20050320
  5. ACCUPRIL [Concomitant]
     Dates: start: 20040115
  6. HYDROCHLOROTHIAZIDE [Concomitant]
     Dates: start: 20040615
  7. METFORMIN HCL [Concomitant]
     Dates: start: 20041115, end: 20050302
  8. ROBAXACET [Concomitant]
     Dates: start: 19950615
  9. TYLENOL W/ CODEINE NO. 3 [Concomitant]
     Dates: start: 19950615
  10. COUMADIN [Concomitant]
     Dates: start: 20050220, end: 20050302

REACTIONS (7)
  - ATRIAL FIBRILLATION [None]
  - CELLULITIS [None]
  - DEHYDRATION [None]
  - DIARRHOEA [None]
  - GOUT [None]
  - LOCALISED INFECTION [None]
  - OSTEOMYELITIS [None]
